FAERS Safety Report 9970504 (Version 1)
Quarter: 2014Q1

REPORT INFORMATION
  Report Type: Spontaneous
  Country: US (occurrence: None)
  Receive Date: 20140305
  Receipt Date: 20140305
  Transmission Date: 20141002
  Serious: Yes (Disabling)
  Sender: FDA-Public Use
  Company Number: None

PATIENT
  Age: 66 Year
  Sex: Male
  Weight: 92.99 kg

DRUGS (3)
  1. AMLODIPINE BESYLATE [Suspect]
     Indication: BLOOD PRESSURE INCREASED
     Dates: start: 20140115, end: 20140203
  2. FISH OIL [Concomitant]
  3. ALPHA LIPOIC ACID [Concomitant]

REACTIONS (10)
  - Palpitations [None]
  - Fatigue [None]
  - Malaise [None]
  - Depression [None]
  - Dizziness [None]
  - Pollakiuria [None]
  - Constipation [None]
  - Abdominal distension [None]
  - Weight increased [None]
  - Pruritus [None]
